FAERS Safety Report 9588642 (Version 1)
Quarter: 2013Q4

REPORT INFORMATION
  Report Type: Spontaneous
  Country: US (occurrence: US)
  Receive Date: 20131003
  Receipt Date: 20131003
  Transmission Date: 20140711
  Serious: No
  Sender: FDA-Public Use
  Company Number: US-AMGEN-USASP2012065296

PATIENT
  Age: 36 Year
  Sex: Female

DRUGS (6)
  1. ENBREL [Suspect]
     Indication: RHEUMATOID ARTHRITIS
     Dosage: 50 MG, QWK
     Route: 058
  2. PAXIL [Concomitant]
     Dosage: 10 MG, UNK
  3. ORTHO TRI-CYCLEN [Concomitant]
  4. ALLEGRA [Concomitant]
     Dosage: 180 MG, UNK
  5. MOBIC [Concomitant]
     Dosage: 7.5 MG, UNK
  6. MULTIVITAMIN                       /00097801/ [Concomitant]
     Dosage: UNK

REACTIONS (1)
  - Sinusitis [Unknown]
